FAERS Safety Report 12788547 (Version 1)
Quarter: 2016Q3

REPORT INFORMATION
  Report Type: Report from Study
  Country: US (occurrence: US)
  Receive Date: 20160928
  Receipt Date: 20160928
  Transmission Date: 20161109
  Serious: Yes (Other)
  Sender: FDA-Public Use
  Company Number: US-ELI_LILLY_AND_COMPANY-US201609006098

PATIENT
  Age: 63 Year
  Sex: Male

DRUGS (5)
  1. HUMULIN R [Suspect]
     Active Substance: INSULIN HUMAN
     Dosage: UNK, UNKNOWN
     Route: 065
     Dates: start: 201608
  2. INSULIN LISPRO [Suspect]
     Active Substance: INSULIN LISPRO
     Indication: TYPE 2 DIABETES MELLITUS
     Dosage: 100 U, TID
     Dates: start: 201608
  3. INSULIN LISPRO [Suspect]
     Active Substance: INSULIN LISPRO
     Dosage: 100 U, TID
     Dates: start: 201608
  4. HUMULIN R [Suspect]
     Active Substance: INSULIN HUMAN
     Indication: TYPE 2 DIABETES MELLITUS
     Dosage: 250 U, UNKNOWN
     Route: 065
     Dates: start: 2014
  5. HUMULIN R [Suspect]
     Active Substance: INSULIN HUMAN
     Indication: NEUROPATHY PERIPHERAL
     Dosage: 400-420 U, OTHER
     Route: 065

REACTIONS (12)
  - Hypoglycaemic coma [Unknown]
  - Feeling abnormal [Unknown]
  - Drug ineffective [Unknown]
  - Blood glucose decreased [Unknown]
  - Hypoglycaemia [Unknown]
  - Blood glucose decreased [Unknown]
  - Blood glucose increased [Unknown]
  - Injection site necrosis [Unknown]
  - Somnolence [Unknown]
  - Blood glucose decreased [Unknown]
  - Neuropathy peripheral [Unknown]
  - Hypoglycaemic unconsciousness [Unknown]

NARRATIVE: CASE EVENT DATE: 20140415
